FAERS Safety Report 20468372 (Version 9)
Quarter: 2022Q3

REPORT INFORMATION
  Report Type: Report from Study
  Country: GB (occurrence: GB)
  Receive Date: 20220214
  Receipt Date: 20220929
  Transmission Date: 20221027
  Serious: Yes (Life-Threatening, Hospitalization, Other)
  Sender: FDA-Public Use
  Company Number: GB-CELLTRION INC.-2022GB001419

PATIENT

DRUGS (144)
  1. TRASTUZUMAB [Suspect]
     Active Substance: TRASTUZUMAB
     Indication: Breast cancer metastatic
     Dosage: 600 MG
     Route: 058
     Dates: start: 20180202, end: 20180827
  2. TRASTUZUMAB [Suspect]
     Active Substance: TRASTUZUMAB
     Indication: Breast cancer metastatic
     Dosage: 600 MG (DOSE FORM: 231)
     Route: 058
     Dates: start: 20180202, end: 20180827
  3. DENOSUMAB [Suspect]
     Active Substance: DENOSUMAB
     Indication: Breast cancer metastatic
     Dosage: 120 MG
     Route: 058
     Dates: start: 20201231
  4. EXEMESTANE [Suspect]
     Active Substance: EXEMESTANE
     Indication: Breast cancer metastatic
     Dosage: 25 MG/M2, DAILY
     Route: 048
     Dates: start: 20200228
  5. LETROZOLE [Suspect]
     Active Substance: LETROZOLE
     Indication: Breast cancer metastatic
     Dosage: 2.5 MG, DAILY
     Route: 048
     Dates: start: 20180119, end: 20180126
  6. LETROZOLE [Suspect]
     Active Substance: LETROZOLE
     Dosage: 2.5 MG, DAILY
     Route: 048
     Dates: start: 20180119, end: 20180126
  7. LETROZOLE [Suspect]
     Active Substance: LETROZOLE
     Dosage: 2.5 MG, EVERY DAY
     Route: 048
     Dates: start: 20180525
  8. LETROZOLE [Suspect]
     Active Substance: LETROZOLE
     Dosage: 2.5 MG, DAILY
     Route: 048
     Dates: start: 20180119, end: 20180126
  9. LETROZOLE [Suspect]
     Active Substance: LETROZOLE
     Dosage: 2.5 MG, DAILY
     Route: 048
     Dates: start: 20180119, end: 20180126
  10. PACLITAXEL [Suspect]
     Active Substance: PACLITAXEL
     Indication: Breast cancer metastatic
     Dosage: 156 MG, EVERY 1 WEEK
     Route: 042
     Dates: start: 20180202, end: 20180518
  11. ADO-TRASTUZUMAB EMTANSINE [Suspect]
     Active Substance: ADO-TRASTUZUMAB EMTANSINE
     Indication: Breast cancer metastatic
     Dosage: 420 MG, EVERY 3 WEEKS (DOSE FORM: 230)
     Route: 042
     Dates: start: 20181019, end: 20190927
  12. CALCIUM CARBONATE\CHOLECALCIFEROL [Concomitant]
     Active Substance: CALCIUM CARBONATE\CHOLECALCIFEROL
     Dosage: DOSE 2, DAILY (2 CAPSULE, DOSE FORM: 5)
     Route: 048
     Dates: start: 20140127
  13. AMLODIPINE [Concomitant]
     Active Substance: AMLODIPINE BESYLATE
     Dosage: 10 MG, DAILY (DOSE FORM: 245) (STOP DATE: 01 MAR 2018)
     Route: 048
  14. AMOXICILLIN [Concomitant]
     Active Substance: AMOXICILLIN
     Indication: Stoma site haemorrhage
     Dosage: 3 G, DAILY
     Route: 042
     Dates: start: 20190911, end: 20190915
  15. CARBOXYMETHYLCELLULOSE SODIUM [Concomitant]
     Active Substance: CARBOXYMETHYLCELLULOSE SODIUM
     Indication: Wound
     Dosage: UNK
     Route: 061
     Dates: start: 20181220, end: 20190116
  16. BENDROFLUMETHIAZIDE [Concomitant]
     Active Substance: BENDROFLUMETHIAZIDE
     Indication: Stoma site haemorrhage
     Dosage: 2.5 MG, DAILY (DOSE FORM: 245, CUMULATIVE DOSE: 17362.5 MG)
     Route: 048
     Dates: start: 20030114, end: 20190906
  17. BENDROFLUMETHIAZIDE [Concomitant]
     Active Substance: BENDROFLUMETHIAZIDE
     Dosage: 2.5 MG, DAILY (DOSE FORM: 245; CUMULATIVE DOSE: 2160.1042 MG)
     Route: 048
     Dates: start: 20190908
  18. BENZYDAMINE [Concomitant]
     Active Substance: BENZYDAMINE
     Dosage: 5 ML, AS NECESSARY
     Route: 065
     Dates: start: 20180414
  19. CETIRIZINE [Concomitant]
     Active Substance: CETIRIZINE HYDROCHLORIDE
     Dosage: 10 MICROGRAM (DOSE FORM: 245)
     Route: 048
     Dates: start: 20080430, end: 20191119
  20. CHIROCAINE [Concomitant]
     Active Substance: LEVOBUPIVACAINE HYDROCHLORIDE
     Indication: Arthralgia
     Dosage: 20 ML
     Route: 008
     Dates: start: 20181220, end: 20181220
  21. CHLORHEXIDINE [Concomitant]
     Active Substance: CHLORHEXIDINE
     Dosage: 10 ML, AS NECESSARY
     Route: 050
     Dates: start: 20181019
  22. CHLORPHENIRAMINE MALEATE [Concomitant]
     Active Substance: CHLORPHENIRAMINE MALEATE
     Indication: Stoma site haemorrhage
     Dosage: 10 MG
     Route: 042
     Dates: start: 20180202, end: 20180518
  23. CHLORPHENIRAMINE MALEATE [Concomitant]
     Active Substance: CHLORPHENIRAMINE MALEATE
     Dosage: 4 MG, DAILY (DOSE FORM: 245, CUMULATIVE DOSE: 3452.1667 MG)
     Route: 048
     Dates: start: 20190909, end: 20190915
  24. CHLORPHENIRAMINE MALEATE [Concomitant]
     Active Substance: CHLORPHENIRAMINE MALEATE
     Dosage: 4 MG, AS NECESSARY (DOSE FORM: 245)
     Route: 048
     Dates: start: 20190919
  25. CIPROFLOXACIN [Concomitant]
     Active Substance: CIPROFLOXACIN
     Indication: Urinary tract infection
     Dosage: 800 MG, DAILY (CUMULATIVE DOSE: 4000.0 MG)
     Route: 042
     Dates: start: 20220124
  26. CIPROFLOXACIN [Concomitant]
     Active Substance: CIPROFLOXACIN
     Indication: Stoma site haemorrhage
     Dosage: 1000 MG, DAILY (DOSE FORM: 245) (STOP DATE: 09-OCT-2019)
     Route: 048
     Dates: start: 201910
  27. CLARITHROMYCIN [Concomitant]
     Active Substance: CLARITHROMYCIN
     Indication: Cellulitis
     Dosage: 1000 MG, DAILY (DOSE FORM: 245, CUMULATIVE DOSE: 917041.7 MG)
     Route: 048
     Dates: start: 20190717, end: 20190724
  28. CLARITHROMYCIN [Concomitant]
     Active Substance: CLARITHROMYCIN
     Dosage: 1000 MG, DAILY (DOSE FORM: 245; CUMULATIVE DOSE: 610041.7MG)
     Route: 048
     Dates: start: 20200519, end: 20200525
  29. CLARITHROMYCIN [Concomitant]
     Active Substance: CLARITHROMYCIN
     Dosage: 1000 MG, DAILY (DOSE FORM: 245; CULMULATIVE DOSE: 505041.66 MG)
     Route: 048
     Dates: start: 20200901, end: 20200908
  30. CLARITHROMYCIN [Concomitant]
     Active Substance: CLARITHROMYCIN
     Dosage: 500 GRAM (DOSE FORM: 245)
     Route: 048
     Dates: start: 20210521
  31. ENOXAPARIN SODIUM [Concomitant]
     Active Substance: ENOXAPARIN SODIUM
     Indication: Stoma site haemorrhage
     Dosage: 40 MG, DAILY (CUMULATIVE DOSE: 38761.668 MG)
     Route: 058
     Dates: start: 20190526, end: 20190527
  32. ENOXAPARIN SODIUM [Concomitant]
     Active Substance: ENOXAPARIN SODIUM
     Indication: Oedema peripheral
     Dosage: 40 MG, DAILY
     Route: 058
     Dates: start: 20180227, end: 20180228
  33. CLOTRIMAZOLE [Concomitant]
     Active Substance: CLOTRIMAZOLE
     Dosage: DOSE 1, AS NECESSARY (DOSE FORM: 17)
     Route: 061
     Dates: start: 20180125
  34. AMOXICILLIN\CLAVULANATE POTASSIUM [Concomitant]
     Active Substance: AMOXICILLIN\CLAVULANATE POTASSIUM
     Indication: Stoma site haemorrhage
     Dosage: 1875 MG, DAILY (DOSE FORM: 245)
     Route: 048
     Dates: start: 20190915, end: 20190916
  35. COCODAMOL [Concomitant]
     Active Substance: ACETAMINOPHEN\CODEINE PHOSPHATE
     Dosage: DOSE FORM: 245
     Route: 048
     Dates: start: 20180302
  36. COCODAMOL [Concomitant]
     Active Substance: ACETAMINOPHEN\CODEINE PHOSPHATE
     Dosage: 1 TABLET, DOSE FORM: 245
     Route: 048
     Dates: start: 20030104, end: 20180225
  37. CODEINE [Concomitant]
     Active Substance: CODEINE
     Indication: Oedema peripheral
     Dosage: 30 MG (DOSE FORM: 245)
     Route: 048
     Dates: start: 20180228, end: 20180301
  38. CODEINE PHOSPHATE [Concomitant]
     Active Substance: CODEINE PHOSPHATE
     Indication: Abdominal hernia obstructive
     Dosage: 330 MG, AS NECESSARY (DOSE FORM: 245)
     Route: 048
     Dates: start: 20191111, end: 20191111
  39. CHOLECALCIFEROL [Concomitant]
     Active Substance: CHOLECALCIFEROL
     Dosage: DOSE 2, DAILY (2 TABLET, DOSE FORM: 245)
     Route: 048
     Dates: start: 20180926
  40. CYCLIZINE [Concomitant]
     Active Substance: CYCLIZINE
     Dosage: 50 MG, AS NECESSARY (DOSE FORM: 245)
     Route: 048
     Dates: start: 20181102
  41. DEXAMETHASONE [Concomitant]
     Active Substance: DEXAMETHASONE
     Indication: Arthralgia
     Dosage: 8 MG
     Route: 042
     Dates: start: 20180202, end: 20180518
  42. DEXAMETHASONE [Concomitant]
     Active Substance: DEXAMETHASONE
     Dosage: 3 MG, DAILY (DOSE FORM: 245, CUMULATIVE DOSE: 3597.125 MG)
     Route: 048
     Dates: start: 20181008, end: 20181014
  43. DEXAMETHASONE [Concomitant]
     Active Substance: DEXAMETHASONE
     Dosage: 4 MG DAILY (DOSE FORM: 245) (CUMULATIVE DOSE: 4884.1665 MG)
     Route: 048
     Dates: start: 20180916, end: 20181004
  44. DEXAMETHASONE [Concomitant]
     Active Substance: DEXAMETHASONE
     Dosage: 2 MG DAILY (DOSE FORM: 245) (CUMULATIVE DOSE:2384.0833 MG)
     Route: 048
     Dates: start: 20181015, end: 20181022
  45. DEXAMETHASONE [Concomitant]
     Active Substance: DEXAMETHASONE
     Dosage: 3.3 G
     Route: 042
     Dates: start: 20181220, end: 20181220
  46. DEXAMETHASONE [Concomitant]
     Active Substance: DEXAMETHASONE
     Dosage: 1 MG DAILY (DOSE FORM: 245) (CUMULATIVE DOSE:1184.0416 MG)
     Route: 048
     Dates: start: 20181023, end: 20181030
  47. ISOPROPYL MYRISTATE\MINERAL OIL [Concomitant]
     Active Substance: ISOPROPYL MYRISTATE\MINERAL OIL
     Dosage: DOSE 1, AS NECESSARY (DOSE FORM: 95)
     Route: 061
     Dates: start: 20180605, end: 20210329
  48. DOXAZOSIN [Concomitant]
     Active Substance: DOXAZOSIN MESYLATE
     Dosage: 2 MG, DAILY (DOSE FORM: 245)
     Route: 048
     Dates: start: 20040816, end: 20190906
  49. DOXYCYCLINE [Concomitant]
     Active Substance: DOXYCYCLINE
     Indication: Skin ulcer
     Dosage: 200 MG, DAILY (DOSE FORM: 245, CUMULATIVE DOSE: 232600.0 MG)
     Route: 048
     Dates: start: 20181113, end: 20181113
  50. DOXYCYCLINE [Concomitant]
     Active Substance: DOXYCYCLINE
     Dosage: 100 MG, DAILY (DOSE FORM: 245, CUMULATIVE DOSE: 116200.0 MG)
     Route: 048
     Dates: start: 20181114, end: 20181119
  51. DUODERM [CARMELLOSE;GELATIN;PARAFFIN, LIQUID;PECTIN] [Concomitant]
     Dosage: UNK
  52. ENOXAPARIN [Concomitant]
     Active Substance: ENOXAPARIN
     Indication: Arthralgia
     Dosage: 4 MG, AS NECESSARY
     Route: 042
     Dates: start: 20181119, end: 20181122
  53. ENOXAPARIN [Concomitant]
     Active Substance: ENOXAPARIN
     Dosage: 40 MG, DAILY (CUMULATIVE DOSE: 45040.0 MG)
     Route: 058
     Dates: start: 20181220, end: 20190107
  54. ENOXAPARIN [Concomitant]
     Active Substance: ENOXAPARIN
     Dosage: 40 MG, DAILY (CUMULATIVE DOSE: 3120.0 MG)
     Route: 058
     Dates: start: 20211102, end: 20211104
  55. EUMOVATE [Concomitant]
     Active Substance: CLOBETASONE BUTYRATE
     Dosage: DOSE 2, DAILY
     Route: 061
     Dates: start: 20190403
  56. FERROUS FUMARATE [Concomitant]
     Active Substance: FERROUS FUMARATE
     Indication: Stoma site haemorrhage
     Dosage: 630 MG, DAILY (DOSE FORM: 245)
     Route: 048
     Dates: start: 20190730
  57. FEXOFENADINE [Concomitant]
     Active Substance: FEXOFENADINE HYDROCHLORIDE
     Indication: Abdominal hernia obstructive
     Dosage: 180 MG, DAILY (DOSE FORM: 245, CUMULATIVE DOSE: 183967.5 MG)
     Route: 048
     Dates: start: 20190403, end: 20190503
  58. FEXOFENADINE [Concomitant]
     Active Substance: FEXOFENADINE HYDROCHLORIDE
     Dosage: 180 MG, DAILY (DOSE FORM: 245) (STOP DATE: 19 NOV 2019)
     Route: 048
     Dates: start: 201911
  59. FLUCONAZOLE [Concomitant]
     Active Substance: FLUCONAZOLE
     Dosage: 100 MG, DAILY (DOSE FORM: 245)
     Route: 048
     Dates: start: 20180125, end: 20180128
  60. FOLIC ACID [Concomitant]
     Active Substance: FOLIC ACID
     Dosage: 5 MG, DAILY (DOSE FORM: 245)
     Route: 048
     Dates: start: 20030207
  61. FUROSEMIDE [Concomitant]
     Active Substance: FUROSEMIDE
     Indication: Oedema peripheral
     Dosage: 50 MG
     Route: 042
     Dates: start: 20180225, end: 20180225
  62. FUROSEMIDE [Concomitant]
     Active Substance: FUROSEMIDE
     Dosage: 40 MG, DAILY (DOSE FORM: 245, CUMULATIVE DOSE: 23321.666 MG)
     Route: 048
     Dates: start: 20200615
  63. FUROSEMIDE [Concomitant]
     Active Substance: FUROSEMIDE
     Dosage: 20 MG, DAILY (DOSE FORM: 245; CUMULATIVE DOSE: 12440.833 MG)
     Route: 048
     Dates: start: 20200507, end: 20200614
  64. BETAMETHASONE VALERATE\FUSIDIC ACID [Concomitant]
     Active Substance: BETAMETHASONE VALERATE\FUSIDIC ACID
     Dosage: DOSE 2, DAILY (DOSE FORM: 17)
     Route: 061
     Dates: start: 20201201
  65. GENTAMICIN [Concomitant]
     Active Substance: GENTAMICIN
     Indication: Stoma site haemorrhage
     Dosage: 400 MG
     Route: 042
     Dates: start: 20190913, end: 20190913
  66. GENTAMICIN [Concomitant]
     Active Substance: GENTAMICIN
     Dosage: 400 MG
     Route: 042
     Dates: start: 20190913, end: 20190913
  67. GENTAMICIN [Concomitant]
     Active Substance: GENTAMICIN
     Dosage: 400 MG
     Route: 042
     Dates: start: 20190911, end: 20190911
  68. GENTAMICIN [Concomitant]
     Active Substance: GENTAMICIN
     Dosage: 400 MG
     Route: 042
     Dates: start: 20190526, end: 20190526
  69. GENTAMICIN [Concomitant]
     Active Substance: GENTAMICIN
     Dosage: 400 MG
     Route: 042
     Dates: start: 20190528, end: 20190528
  70. GENTAMICIN [Concomitant]
     Active Substance: GENTAMICIN
     Dosage: 400 MG
     Route: 042
     Dates: start: 20181119, end: 20181119
  71. GENTAMICIN [Concomitant]
     Active Substance: GENTAMICIN
     Dosage: 260 MILLIGRAM
     Route: 042
     Dates: start: 20220119
  72. HEPARIN SODIUM [Concomitant]
     Active Substance: HEPARIN SODIUM
     Dosage: 5 ML
     Route: 042
     Dates: start: 20190502, end: 20191106
  73. HYDROXOCOBALAMIN [Concomitant]
     Active Substance: HYDROXOCOBALAMIN
     Dosage: 1 MG
     Route: 030
     Dates: start: 20020115, end: 20200506
  74. HYDROXOCOBALAMIN [Concomitant]
     Active Substance: HYDROXOCOBALAMIN
     Dosage: UNK
     Route: 030
     Dates: start: 20201231
  75. INFLUENZA VIRUS VACCINE [Concomitant]
     Active Substance: INFLUENZA VIRUS VACCINE
     Dosage: 0.5 ML
     Route: 030
     Dates: start: 20211106, end: 20211106
  76. MINERAL OIL [Concomitant]
     Active Substance: MINERAL OIL
     Indication: Dry skin
     Dosage: DOSE 1, AS NECESSARY (DOSE FORM: 95)
     Route: 061
     Dates: start: 20210329
  77. LEVOFLOXACIN [Concomitant]
     Active Substance: LEVOFLOXACIN
     Indication: Oedema peripheral
     Dosage: 500 MG (DOSE FORM: 245)
     Route: 048
     Dates: start: 20180301, end: 20180301
  78. LEVOFLOXACIN [Concomitant]
     Active Substance: LEVOFLOXACIN
     Dosage: 1000 MG, DAILY (CUMULATIVE DOSE: 1424000.0 MG)
     Route: 042
     Dates: start: 20180225, end: 20180228
  79. METOCLOPRAMIDE [Concomitant]
     Active Substance: METOCLOPRAMIDE
     Indication: Stoma site haemorrhage
     Dosage: 10 MG, DAILY (DOSE FORM: 245)
     Route: 048
     Dates: start: 201910
  80. METOCLOPRAMIDE [Concomitant]
     Active Substance: METOCLOPRAMIDE
     Dosage: 10 MG, AS NECESSARY (DOSE FORM: 245)
     Route: 048
     Dates: start: 20180202, end: 20180518
  81. METOCLOPRAMIDE [Concomitant]
     Active Substance: METOCLOPRAMIDE
     Dosage: 10 MG, DAILY (DOSE FORM: 245)
     Route: 048
     Dates: start: 20190909, end: 20190909
  82. METRONIDAZOLE [Concomitant]
     Active Substance: METRONIDAZOLE
     Indication: Stoma site haemorrhage
     Dosage: 1200 MG, DAILY (DOSE FORM:245, CUMULATIVE DOSE: 1384800.0 MG)
     Route: 048
     Dates: start: 20181122, end: 20181123
  83. METRONIDAZOLE [Concomitant]
     Active Substance: METRONIDAZOLE
     Dosage: 1200 MG, DAILY (DOSE FORM:245) STOP DATE: 09 OCT 2019
     Route: 048
     Dates: start: 201910
  84. METRONIDAZOLE [Concomitant]
     Active Substance: METRONIDAZOLE
     Dosage: 1500 MG, EVERY 1 WEEK (CUMULATIVE DOSE: 207651.78 MG) (STOP DATE: MAY 2019)
     Route: 042
     Dates: start: 20190526
  85. METRONIDAZOLE [Concomitant]
     Active Substance: METRONIDAZOLE
     Dosage: 400 MG (DOSE FORM: 245)
     Route: 048
     Dates: start: 20190918, end: 20190918
  86. METRONIDAZOLE [Concomitant]
     Active Substance: METRONIDAZOLE
     Dosage: 400 MG (DOSE FORM: 245)
     Route: 048
     Dates: start: 20190916, end: 20190916
  87. METRONIDAZOLE [Concomitant]
     Active Substance: METRONIDAZOLE
     Dosage: 1500 MG, DAILY (CUMULATIVE DOSE:1291562.5 MG) DOSE FORM: 245
     Route: 048
     Dates: start: 20190911, end: 20190915
  88. METRONIDAZOLE [Concomitant]
     Active Substance: METRONIDAZOLE
     Dosage: 1500 MG, DAILY (CUMULATIVE DOSE:1735500.0 MG)
     Route: 042
     Dates: start: 20181119, end: 20181121
  89. MORPHINE [Concomitant]
     Active Substance: MORPHINE
     Indication: Arthralgia
     Dosage: 12 ML
     Route: 042
     Dates: start: 20181220, end: 20181220
  90. SODIUM CHLORIDE [Concomitant]
     Active Substance: SODIUM CHLORIDE
     Indication: Stoma site haemorrhage
     Dosage: 500 ML
     Route: 042
     Dates: start: 20190726, end: 20190726
  91. SODIUM CHLORIDE [Concomitant]
     Active Substance: SODIUM CHLORIDE
     Indication: Gastrointestinal haemorrhage
     Dosage: 500 ML
     Route: 042
     Dates: start: 20181122, end: 20181123
  92. SODIUM CHLORIDE [Concomitant]
     Active Substance: SODIUM CHLORIDE
     Dosage: 3500 ML
     Route: 042
     Dates: start: 20190910, end: 20190912
  93. SODIUM CHLORIDE [Concomitant]
     Active Substance: SODIUM CHLORIDE
     Dosage: UNK
     Route: 042
     Dates: start: 20190920, end: 20190921
  94. SODIUM CHLORIDE [Concomitant]
     Active Substance: SODIUM CHLORIDE
     Dosage: 500 ML
     Route: 042
     Dates: start: 20190523, end: 20190523
  95. SODIUM CHLORIDE [Concomitant]
     Active Substance: SODIUM CHLORIDE
     Dosage: 500 ML
     Route: 042
     Dates: start: 20200225, end: 20200225
  96. SODIUM CHLORIDE [Concomitant]
     Active Substance: SODIUM CHLORIDE
     Dosage: 500 ML
     Route: 042
     Dates: start: 20181123, end: 20181123
  97. OMEPRAZOLE [Concomitant]
     Active Substance: OMEPRAZOLE
     Indication: Stoma site haemorrhage
     Dosage: 20 MG, DAILY (DOSE FORM: 245, CUMULATIVE DOSE: 89600.836 MG)
     Route: 048
     Dates: start: 20091014, end: 20191106
  98. OMEPRAZOLE [Concomitant]
     Active Substance: OMEPRAZOLE
     Dosage: 80 MG, DAILY (DOSE FORM: 245) (CUMULATIVE DOSE: 56000.0 MG)
     Route: 048
     Dates: start: 20200219
  99. OMEPRAZOLE [Concomitant]
     Active Substance: OMEPRAZOLE
     Dosage: 80 MG, DAILY (DOSE FORM: 245) (CUMULATIVE DOSE: 64320.0 MG)
     Route: 048
     Dates: start: 20191107, end: 20200205
  100. ONDANSETRON [Concomitant]
     Active Substance: ONDANSETRON
     Indication: Arthralgia
     Dosage: 4 MG (DOSE FORM: 245)
     Route: 048
     Dates: start: 20200214, end: 20200214
  101. ONDANSETRON [Concomitant]
     Active Substance: ONDANSETRON
     Indication: Stoma site haemorrhage
     Dosage: 4 MG, AS NECESSARY (DOSE FORM: 245)
     Route: 048
     Dates: start: 20181216, end: 20190107
  102. ONDANSETRON [Concomitant]
     Active Substance: ONDANSETRON
     Dosage: 4 MG (DOSE FORM: 245)
     Route: 048
     Dates: start: 20190920, end: 20190920
  103. ONDANSETRON [Concomitant]
     Active Substance: ONDANSETRON
     Dosage: 4 MG, AS NECESSARY (DOSE FORM: 245)
     Route: 042
     Dates: start: 20181119, end: 20181122
  104. OXYCODONE [Concomitant]
     Active Substance: OXYCODONE
     Indication: Arthralgia
     Dosage: 5 MG, AS NECESSARY (DOSE FORM: 245)
     Route: 048
     Dates: start: 20181003
  105. OXYCODONE [Concomitant]
     Active Substance: OXYCODONE
     Dosage: DOSE 2, DAILY (DOSE FORM: 245)
     Route: 048
     Dates: start: 20181003
  106. OXYCODONE [Concomitant]
     Active Substance: OXYCODONE
     Dosage: 5 MG, AS NECESSARY
     Route: 048
     Dates: start: 20180922, end: 20181002
  107. OXYCODONE [Concomitant]
     Active Substance: OXYCODONE
     Dosage: DOSE 2, DAILY (DOSE FORM: 245)
     Route: 048
     Dates: start: 20180916, end: 20181002
  108. OXYGEN [Concomitant]
     Active Substance: OXYGEN
     Indication: Arthralgia
     Dosage: DOSE FORM: 204
     Route: 065
     Dates: start: 20181220, end: 20181220
  109. ACETAMINOPHEN [Concomitant]
     Active Substance: ACETAMINOPHEN
     Indication: Oedema peripheral
     Dosage: 1 G, AS NECESSARY (DOSE FORM: 245)
     Route: 048
     Dates: start: 20181003
  110. ACETAMINOPHEN [Concomitant]
     Active Substance: ACETAMINOPHEN
     Indication: Arthralgia
     Dosage: 1 G, AS NECESSARY (DOSE FORM: 245)
     Route: 048
     Dates: start: 20180225, end: 20180301
  111. ACETAMINOPHEN [Concomitant]
     Active Substance: ACETAMINOPHEN
     Dosage: 1 G
     Route: 042
     Dates: start: 20181220, end: 20181220
  112. ACETAMINOPHEN [Concomitant]
     Active Substance: ACETAMINOPHEN
     Dosage: 1 G, AS NECESSARY (DOSE FORM: 245)
     Route: 048
     Dates: start: 20180916, end: 20181002
  113. PENTASA [Concomitant]
     Active Substance: MESALAMINE
     Dosage: DOSE 1, DAILY
     Route: 048
     Dates: start: 20131217
  114. CHLORPHENIRAMINE MALEATE [Concomitant]
     Active Substance: CHLORPHENIRAMINE MALEATE
     Dosage: 4 MG, PRN (DOSE FORM: 245)
     Route: 048
     Dates: start: 20180125
  115. PLASMA-LYTE 148 [Concomitant]
     Active Substance: MAGNESIUM CHLORIDE\POTASSIUM CHLORIDE\SODIUM ACETATE\SODIUM CHLORIDE\SODIUM GLUCONATE
     Indication: Arthralgia
     Dosage: 100 ML
     Route: 042
     Dates: start: 20181220, end: 20181220
  116. PROPOFOL [Concomitant]
     Active Substance: PROPOFOL
     Indication: Arthralgia
     Dosage: 150 MG
     Route: 042
     Dates: start: 20181220, end: 20181220
  117. QUININE SULFATE [Concomitant]
     Active Substance: QUININE SULFATE
     Dosage: 200 MG, DAILY (DOSE FORM: 245)
     Route: 048
     Dates: start: 20040219
  118. RANITIDINE [Concomitant]
     Active Substance: RANITIDINE
     Dosage: 50 MG
     Route: 042
     Dates: start: 20180202, end: 20180518
  119. RANITIDINE [Concomitant]
     Active Substance: RANITIDINE
     Dosage: 150 MG
     Route: 050
     Dates: start: 20181123, end: 20181123
  120. POTASSIUM BICARBONATE\POTASSIUM CHLORIDE [Concomitant]
     Active Substance: POTASSIUM BICARBONATE\POTASSIUM CHLORIDE
     Indication: Stoma site haemorrhage
     Dosage: DOSE 3, DAILY (DOSE FORM: 245, 2 TABLET)
     Route: 048
     Dates: start: 20190730, end: 20190730
  121. POTASSIUM BICARBONATE\POTASSIUM CHLORIDE [Concomitant]
     Active Substance: POTASSIUM BICARBONATE\POTASSIUM CHLORIDE
     Indication: Arthralgia
     Dosage: DOSE 3, DAILY (DOSE FORM: 245, 3 TABLET)
     Route: 048
     Dates: start: 20190911, end: 20190912
  122. POTASSIUM BICARBONATE\POTASSIUM CHLORIDE [Concomitant]
     Active Substance: POTASSIUM BICARBONATE\POTASSIUM CHLORIDE
     Dosage: DOSE 3, DAILY (DOSE FORM: 245, 2 TABLET)
     Route: 048
     Dates: start: 20181216, end: 20181218
  123. POTASSIUM BICARBONATE\POTASSIUM CHLORIDE [Concomitant]
     Active Substance: POTASSIUM BICARBONATE\POTASSIUM CHLORIDE
     Dosage: DOSE 3, DAILY (DOSE FORM: 245, 2 TABLET)
     Route: 048
     Dates: start: 20211103, end: 20211105
  124. SILVER NITRATE [Concomitant]
     Active Substance: SILVER NITRATE
     Indication: Stoma site haemorrhage
     Dosage: UNK
     Route: 061
     Dates: start: 20190527, end: 20190527
  125. SILVER NITRATE [Concomitant]
     Active Substance: SILVER NITRATE
     Dosage: UNK
     Route: 061
     Dates: start: 20190510, end: 20190510
  126. SILVER NITRATE [Concomitant]
     Active Substance: SILVER NITRATE
     Dosage: UNK
     Route: 061
     Dates: start: 20190522, end: 20190522
  127. SILVER NITRATE [Concomitant]
     Active Substance: SILVER NITRATE
     Dosage: UNK
     Route: 061
     Dates: start: 20180329, end: 20180329
  128. SILVER NITRATE [Concomitant]
     Active Substance: SILVER NITRATE
     Dosage: UNK
     Route: 061
     Dates: start: 20180329, end: 20180329
  129. SUGAMMADEX [Concomitant]
     Active Substance: SUGAMMADEX
     Indication: Arthralgia
     Dosage: 200 MG
     Route: 042
     Dates: start: 20181220, end: 20181220
  130. TEICOPLANIN [Concomitant]
     Active Substance: TEICOPLANIN
     Indication: Arthralgia
     Dosage: 400 MG
     Route: 042
     Dates: start: 20181220, end: 20181224
  131. TERBUTALINE [Concomitant]
     Active Substance: TERBUTALINE
     Dosage: 2000 MICROGRAM, DAILY (DOSE FORM: 204)
     Route: 065
     Dates: start: 20030108
  132. TRANEXAMIC ACID [Concomitant]
     Active Substance: TRANEXAMIC ACID
     Indication: Stoma site haemorrhage
     Dosage: 3000 MG, DAILY (DOSE FORM: 245, CUMULATIVE DOSE: 1884125.0 MG)
     Route: 048
     Dates: start: 20200501, end: 20200504
  133. TRANEXAMIC ACID [Concomitant]
     Active Substance: TRANEXAMIC ACID
     Indication: Arthralgia
     Dosage: 3 G, DAILY (DOSE FORM: 245) (CUMULATIVE DOSE: 2589.125 G)
     Route: 054
     Dates: start: 20190909, end: 20190911
  134. TRANEXAMIC ACID [Concomitant]
     Active Substance: TRANEXAMIC ACID
     Dosage: 3 G, DAILY (DOSE FORM: 245) (CUMULATIVE DOSE: 2697.125 G)
     Route: 048
     Dates: start: 20190804, end: 20190806
  135. TRANEXAMIC ACID [Concomitant]
     Active Substance: TRANEXAMIC ACID
     Dosage: 1 G
     Route: 042
     Dates: start: 20181220, end: 20181220
  136. TRIMETHOPRIM [Concomitant]
     Active Substance: TRIMETHOPRIM
     Indication: Pyrexia
     Dosage: 400 MG, DAILY (DOSE FORM: 245)
     Route: 048
     Dates: start: 20190813, end: 20190815
  137. VANCOMYCIN [Concomitant]
     Active Substance: VANCOMYCIN
     Indication: Urinary tract infection
     Dosage: 1000 MG, DAILY (CUMULATIVE DOSE: 968041.7 MG)
     Route: 042
     Dates: start: 20190527
  138. VANCOMYCIN [Concomitant]
     Active Substance: VANCOMYCIN
     Dosage: 2000 MG
     Route: 042
     Dates: start: 20190526, end: 20190526
  139. VANCOMYCIN [Concomitant]
     Active Substance: VANCOMYCIN
     Dosage: 2000 MG
     Route: 042
     Dates: start: 20181119
  140. VANCOMYCIN [Concomitant]
     Active Substance: VANCOMYCIN
     Dosage: 500 MG
     Route: 042
     Dates: start: 20181120, end: 20181122
  141. VANCOMYCIN [Concomitant]
     Active Substance: VANCOMYCIN
     Dosage: 2000 MG
     Route: 042
     Dates: start: 20220123, end: 20220124
  142. VANCOMYCIN [Concomitant]
     Active Substance: VANCOMYCIN
     Dosage: 2000 MG
     Route: 042
     Dates: start: 20220210
  143. ZEROBASE [PARAFFIN, LIQUID] [Concomitant]
     Indication: Dry skin
     Dosage: DOSE 1, AS NECESSARY (DOSE FORM: 17)
     Route: 061
     Dates: start: 20180406
  144. ZOLEDRONIC ACID [Concomitant]
     Active Substance: ZOLEDRONIC ACID
     Dosage: 4 MG
     Route: 042
     Dates: start: 20181019, end: 20190705

REACTIONS (5)
  - Neutropenic sepsis [Recovered/Resolved]
  - Neutropenic sepsis [Not Recovered/Not Resolved]
  - Urosepsis [Recovered/Resolved]
  - Vaginal abscess [Unknown]
  - Off label use [Unknown]

NARRATIVE: CASE EVENT DATE: 20220119
